FAERS Safety Report 6631495-0 (Version None)
Quarter: 2010Q1

REPORT INFORMATION
  Report Type: 
  Country: None (occurrence: None)
  Receive Date: 20100312
  Receipt Date: 20100301
  Transmission Date: 20100710
  Serious: Yes (Other)
  Sender: FDA-Public Use
  Company Number: PHHY2009IE49141

PATIENT
  Sex: Male
  Weight: 86.7 kg

DRUGS (9)
  1. CLOZARIL [Suspect]
     Indication: SCHIZOPHRENIA
     Dosage: UNK
     Dates: start: 20091021
  2. CLOZARIL [Suspect]
     Dosage: 300 MG, UNK
     Dates: start: 20091106
  3. CLOZARIL [Suspect]
     Dosage: 275 MG, UNK
  4. CLOZARIL [Suspect]
     Dosage: 300 MG/DAY
  5. QUETIAPINE [Concomitant]
     Dosage: 300 MG/DAY
  6. RISPERIDONE [Concomitant]
     Dosage: 4 MG/DAY
     Route: 048
     Dates: start: 20091021
  7. ESCITALOPRAM [Concomitant]
     Dosage: 10MG/DAY
  8. LITHIUM [Concomitant]
     Dosage: 1G/DAY
  9. AKINETON [Concomitant]

REACTIONS (7)
  - LYMPHADENOPATHY [None]
  - MUMPS [None]
  - PAROTITIS [None]
  - PSYCHOTIC DISORDER [None]
  - SWELLING [None]
  - SWELLING FACE [None]
  - TACHYCARDIA [None]
